FAERS Safety Report 4693803-X (Version None)
Quarter: 2005Q2

REPORT INFORMATION
  Report Type: 
  Country: None (occurrence: None)
  Receive Date: 20050616
  Receipt Date: 20050607
  Transmission Date: 20051028
  Serious: Yes (Hospitalization, Other)
  Sender: FDA-Public Use
  Company Number: 95-08-0183

PATIENT
  Age: 46 Year
  Sex: Male

DRUGS (4)
  1. WELLFERON [Suspect]
     Indication: CHRONIC MYELOID LEUKAEMIA
     Dosage: 7 MU TIW
     Dates: start: 19930801
  2. INTRON A [Suspect]
     Indication: CHRONIC MYELOID LEUKAEMIA
     Dosage: 2-7 MU TIW SUBCUTANEOUS
     Route: 058
     Dates: start: 19920101, end: 19930801
  3. HYDROXYUREA [Suspect]
     Indication: CHRONIC MYELOID LEUKAEMIA
  4. AMITRIPTYLINE HCL [Suspect]
     Indication: CHRONIC MYELOID LEUKAEMIA

REACTIONS (25)
  - ANTINEUTROPHIL CYTOPLASMIC ANTIBODY POSITIVE [None]
  - BLOOD COUNT [None]
  - BLOOD COUNT ABNORMAL [None]
  - CONVULSION [None]
  - COORDINATION ABNORMAL [None]
  - DEPRESSION [None]
  - DIALYSIS [None]
  - EMBOLISM [None]
  - FATIGUE [None]
  - HAEMOLYTIC URAEMIC SYNDROME [None]
  - HYPOALBUMINAEMIA [None]
  - INFARCTION [None]
  - MALIGNANT HYPERTENSION [None]
  - MALIGNANT RENAL HYPERTENSION [None]
  - MICROANGIOPATHIC HAEMOLYTIC ANAEMIA [None]
  - NEPHROTIC SYNDROME [None]
  - OEDEMA PERIPHERAL [None]
  - PAIN IN EXTREMITY [None]
  - PERIPHERAL VASCULAR DISORDER [None]
  - PROTEINURIA [None]
  - PULMONARY OEDEMA [None]
  - RAYNAUD'S PHENOMENON [None]
  - RENAL FAILURE [None]
  - VASCULITIS [None]
  - WHITE BLOOD CELL COUNT INCREASED [None]
